FAERS Safety Report 4435385-3 (Version None)
Quarter: 2004Q3

REPORT INFORMATION
  Report Type: 
  Country: None (occurrence: None)
  Receive Date: 20040826
  Receipt Date: 20040810
  Transmission Date: 20050211
  Serious: Yes (Life-Threatening, Hospitalization)
  Sender: FDA-Public Use
  Company Number: 8007000

PATIENT
  Age: 48 Year
  Sex: Male
  Weight: 74 kg

DRUGS (6)
  1. LEVETIRACETAM [Suspect]
     Indication: CONVULSION
     Dosage: 1000 MG 3/D PO
     Route: 048
     Dates: start: 20040730, end: 20040806
  2. TORSEMIDE [Concomitant]
  3. PANTOPRAZOL [Concomitant]
  4. CLOBAZAM [Concomitant]
  5. METHOTREXATE [Concomitant]
  6. ARABINOSIDE CYTOSINE [Concomitant]

REACTIONS (9)
  - AREFLEXIA [None]
  - CSF PROTEIN INCREASED [None]
  - EXTENSOR PLANTAR RESPONSE [None]
  - FUNGAL INFECTION [None]
  - MULTIPLE MYELOMA [None]
  - NERVOUS SYSTEM DISORDER [None]
  - PANCYTOPENIA [None]
  - VASCULITIS [None]
  - VIRAL INFECTION [None]
